FAERS Safety Report 18285707 (Version 1)
Quarter: 2020Q3

REPORT INFORMATION
  Report Type: Report from Study
  Country: None (occurrence: US)
  Receive Date: 20200918
  Receipt Date: 20200918
  Transmission Date: 20201103
  Serious: Yes (Life-Threatening)
  Sender: FDA-Public Use
  Company Number: US-ABBVIE-20P-163-3571904-00

PATIENT
  Age: 65 Year
  Sex: Female
  Weight: 51.8 kg

DRUGS (4)
  1. OBINUTUZUMAB. [Concomitant]
     Active Substance: OBINUTUZUMAB
     Indication: CHRONIC LYMPHOCYTIC LEUKAEMIA
     Dosage: ON DAY 1, CYCLE 1
     Route: 042
     Dates: start: 20200319
  2. IBRUTINIB [Suspect]
     Active Substance: IBRUTINIB
     Indication: CHRONIC LYMPHOCYTIC LEUKAEMIA
     Route: 048
     Dates: start: 20200319, end: 20200604
  3. OBINUTUZUMAB. [Concomitant]
     Active Substance: OBINUTUZUMAB
     Dosage: ON DAY 2, CYCLE 1
     Route: 042
     Dates: start: 20200319
  4. OBINUTUZUMAB. [Concomitant]
     Active Substance: OBINUTUZUMAB
     Dosage: ON DAY 8, CYCLE 1; ON DAY 15, CYCLE 1
     Route: 042
     Dates: end: 20200513

REACTIONS (1)
  - Neutrophil count decreased [Recovered/Resolved with Sequelae]

NARRATIVE: CASE EVENT DATE: 20200604
